FAERS Safety Report 12999112 (Version 1)
Quarter: 2016Q4

REPORT INFORMATION
  Report Type: Spontaneous
  Country: US (occurrence: US)
  Receive Date: 20161205
  Receipt Date: 20161205
  Transmission Date: 20170207
  Serious: No
  Sender: FDA-Public Use
  Company Number: US-GLAXOSMITHKLINE-US2016177265

PATIENT
  Sex: Female

DRUGS (3)
  1. VENTOLIN HFA [Suspect]
     Active Substance: ALBUTEROL SULFATE
     Indication: ASTHMA
  2. ADVAIR DISKUS [Suspect]
     Active Substance: FLUTICASONE PROPIONATE\SALMETEROL XINAFOATE
     Indication: ASTHMA
     Dosage: 1 PUFF(S), QD
     Route: 055
  3. ADVAIR DISKUS [Suspect]
     Active Substance: FLUTICASONE PROPIONATE\SALMETEROL XINAFOATE
     Dosage: 1 PUFF(S), BID
     Route: 055
     Dates: start: 201611

REACTIONS (9)
  - Cough [Recovering/Resolving]
  - Off label use [Recovered/Resolved]
  - Device use error [Recovering/Resolving]
  - Cataract [Not Recovered/Not Resolved]
  - Throat irritation [Unknown]
  - Oropharyngeal pain [Recovering/Resolving]
  - Product cleaning inadequate [Recovering/Resolving]
  - Chest discomfort [Unknown]
  - Intentional underdose [Recovered/Resolved]

NARRATIVE: CASE EVENT DATE: 2014
